FAERS Safety Report 6218627-3 (Version None)
Quarter: 2009Q2

REPORT INFORMATION
  Report Type: 
  Country: None (occurrence: None)
  Receive Date: 20090608
  Receipt Date: 20090527
  Transmission Date: 20091009
  Serious: Yes (Death)
  Sender: FDA-Public Use
  Company Number: AT-ROCHE-632029

PATIENT
  Sex: Female

DRUGS (3)
  1. CAPECITABINE [Suspect]
     Indication: BREAST CANCER
     Dosage: LAST DOSE PRIOR TO SAE: AUGUST 2007
     Route: 048
     Dates: start: 20070727
  2. EPIRUBICIN [Suspect]
     Indication: BREAST CANCER
     Dosage: FREQUENCY: 1X. DOSAGE FORM: INFUSION
     Route: 042
     Dates: start: 20070727
  3. DOCETAXEL [Suspect]
     Indication: BREAST CANCER
     Dosage: FREQUENCY: 1X. DOSAGE FORM: INFUSION
     Route: 042
     Dates: start: 20070727

REACTIONS (2)
  - ACUTE MYELOID LEUKAEMIA [None]
  - RENAL FAILURE [None]
